FAERS Safety Report 8243165-6 (Version None)
Quarter: 2012Q1

REPORT INFORMATION
  Report Type: 
  Country: None (occurrence: None)
  Receive Date: 20120329
  Receipt Date: 20120319
  Transmission Date: 20120608
  Serious: Yes (Hospitalization, Other)
  Sender: FDA-Public Use
  Company Number: PT-SANOFI-AVENTIS-200819095GDDC

PATIENT
  Age: 55 Year
  Sex: Male
  Weight: 72.9 kg

DRUGS (12)
  1. PLACEBO [Suspect]
     Dosage: DOSE UNIT: 6 MG/KG
     Route: 042
     Dates: start: 20080916, end: 20080916
  2. DOCETAXEL [Suspect]
     Dosage: DOSE UNIT: 75 MG/M**2
     Route: 042
     Dates: start: 20080916, end: 20080916
  3. PANTOPRAZOLE [Concomitant]
     Dosage: DOSE AS USED: UNK
     Dates: start: 20080921
  4. PRAVASTATIN [Concomitant]
     Dosage: DOSE AS USED: UNK
     Dates: start: 20080922
  5. GOSERELIN [Concomitant]
     Dosage: DOSE AS USED: UNK
  6. PREDNISONE TAB [Suspect]
     Route: 048
     Dates: start: 20080826, end: 20080921
  7. METOCLOPRAMIDE [Concomitant]
     Dosage: DOSE AS USED: UNK
  8. BENESTAN [Concomitant]
     Dosage: DOSE AS USED: UNK
  9. BROMAZEPAM [Concomitant]
     Dates: start: 20080915
  10. ALL OTHER THERAPEUTIC PRODUCTS [Concomitant]
  11. LISINOPRIL [Concomitant]
     Dosage: DOSE AS USED: UNK
     Dates: start: 20080820
  12. OMEPRAZOLE [Concomitant]

REACTIONS (1)
  - ISCHAEMIC STROKE [None]
